FAERS Safety Report 7508887-0 (Version None)
Quarter: 2011Q2

REPORT INFORMATION
  Report Type: 
  Country: None (occurrence: None)
  Receive Date: 20110527
  Receipt Date: 20110524
  Transmission Date: 20111010
  Serious: Yes (Death)
  Sender: FDA-Public Use
  Company Number: PHHY2011MX44660

PATIENT
  Sex: Female

DRUGS (1)
  1. EXELON [Suspect]
     Indication: PARKINSON'S DISEASE
     Dosage: PATCH 5, ONE
     Route: 062
     Dates: start: 20110420

REACTIONS (1)
  - DEATH [None]
